FAERS Safety Report 14471700 (Version 2)
Quarter: 2018Q1

REPORT INFORMATION
  Report Type: Spontaneous
  Country: US (occurrence: US)
  Receive Date: 20180131
  Receipt Date: 20180220
  Transmission Date: 20180509
  Serious: Yes (Hospitalization)
  Sender: FDA-Public Use
  Company Number: US-VERTEX PHARMACEUTICALS-2018-000628

PATIENT
  Age: 27 Year
  Sex: Female
  Weight: 81 kg

DRUGS (2)
  1. ORKAMBI [Suspect]
     Active Substance: IVACAFTOR\LUMACAFTOR
     Indication: CYSTIC FIBROSIS
     Dosage: 2 DOSAGE FORM (200/125 MG), BID
     Route: 048
     Dates: start: 2015
  2. CAYSTON [Concomitant]
     Active Substance: AZTREONAM

REACTIONS (2)
  - Lung infection [Unknown]
  - Hospitalisation [Unknown]

NARRATIVE: CASE EVENT DATE: 2017
